FAERS Safety Report 5379675-9 (Version None)
Quarter: 2007Q2

REPORT INFORMATION
  Report Type: 
  Country: None (occurrence: None)
  Receive Date: 20070530
  Receipt Date: 20070406
  Transmission Date: 20071010
  Serious: No
  Sender: FDA-Public Use
  Company Number: 2007PV031188

PATIENT
  Age: 52 Year
  Sex: Female

DRUGS (3)
  1. BYETTA [Suspect]
     Indication: DIABETES MELLITUS NON-INSULIN-DEPENDENT
     Dosage: 5 MCG; QD; SC; 10 MCG; BID; SC
     Route: 058
     Dates: start: 20070301, end: 20070308
  2. BYETTA [Suspect]
     Indication: DIABETES MELLITUS NON-INSULIN-DEPENDENT
     Dosage: 5 MCG; QD; SC; 10 MCG; BID; SC
     Route: 058
     Dates: start: 20070308
  3. BYETTA [Suspect]

REACTIONS (5)
  - ASTHENIA [None]
  - DIARRHOEA [None]
  - FATIGUE [None]
  - NAUSEA [None]
  - RECTAL HAEMORRHAGE [None]
